FAERS Safety Report 8593418 (Version 3)
Quarter: 2013Q4

REPORT INFORMATION
  Report Type: Spontaneous
  Country: US (occurrence: US)
  Receive Date: 20120604
  Receipt Date: 20131127
  Transmission Date: 20140711
  Serious: Yes (Hospitalization, Disabling)
  Sender: FDA-Public Use
  Company Number: US-ASTRAZENECA-2012SE35326

PATIENT
  Sex: Female
  Weight: 51.7 kg

DRUGS (36)
  1. NEXIUM [Suspect]
     Indication: IRRITABLE BOWEL SYNDROME
     Route: 048
     Dates: start: 2002
  2. NEXIUM [Suspect]
     Indication: GASTROOESOPHAGEAL REFLUX DISEASE
     Route: 048
     Dates: start: 2002
  3. NEXIUM [Suspect]
     Indication: IRRITABLE BOWEL SYNDROME
     Dosage: THREE TIMES A DAY
     Route: 048
     Dates: start: 2004, end: 2010
  4. NEXIUM [Suspect]
     Indication: GASTROOESOPHAGEAL REFLUX DISEASE
     Dosage: THREE TIMES A DAY
     Route: 048
     Dates: start: 2004, end: 2010
  5. PRILOSEC [Suspect]
     Indication: IRRITABLE BOWEL SYNDROME
     Dosage: TWO PILLS
     Route: 048
     Dates: start: 2000
  6. PRILOSEC [Suspect]
     Indication: GASTROOESOPHAGEAL REFLUX DISEASE
     Dosage: TWO PILLS
     Route: 048
     Dates: start: 2000
  7. PRILOSEC [Suspect]
     Indication: IRRITABLE BOWEL SYNDROME
     Route: 048
     Dates: start: 2001
  8. PRILOSEC [Suspect]
     Indication: GASTROOESOPHAGEAL REFLUX DISEASE
     Route: 048
     Dates: start: 2001
  9. PROTONIX/PANTOPRAZOLE [Suspect]
     Indication: IRRITABLE BOWEL SYNDROME
     Dosage: 10-20 MG ONCE DAILY
     Route: 065
     Dates: start: 2000
  10. PROTONIX/PANTOPRAZOLE [Suspect]
     Indication: GASTROOESOPHAGEAL REFLUX DISEASE
     Dosage: 10-20 MG ONCE DAILY
     Route: 065
     Dates: start: 2000
  11. PROTONIX/PANTOPRAZOLE [Suspect]
     Indication: IRRITABLE BOWEL SYNDROME
     Route: 065
  12. PROTONIX/PANTOPRAZOLE [Suspect]
     Indication: GASTROOESOPHAGEAL REFLUX DISEASE
     Route: 065
  13. PROTONIX/PANTOPRAZOLE [Suspect]
     Indication: IRRITABLE BOWEL SYNDROME
     Route: 048
     Dates: start: 20110413
  14. PROTONIX/PANTOPRAZOLE [Suspect]
     Indication: GASTROOESOPHAGEAL REFLUX DISEASE
     Route: 048
     Dates: start: 20110413
  15. ACIPHEX [Suspect]
     Indication: IRRITABLE BOWEL SYNDROME
     Route: 065
     Dates: start: 2001
  16. ACIPHEX [Suspect]
     Indication: GASTROOESOPHAGEAL REFLUX DISEASE
     Route: 065
     Dates: start: 2001
  17. RANITIDINE [Suspect]
     Indication: GASTROOESOPHAGEAL REFLUX DISEASE
     Dosage: ONE TABLET ABOUT A THREE TIMES A DAY
     Route: 065
     Dates: start: 201306
  18. RANITIDINE [Suspect]
     Indication: GASTROOESOPHAGEAL REFLUX DISEASE
     Dosage: TAKE 1 TABLET 1/2- 1 HOUR BEFORE
     Route: 065
  19. PREVACID [Concomitant]
     Indication: IRRITABLE BOWEL SYNDROME
     Dates: start: 2003
  20. PREVACID [Concomitant]
     Indication: GASTROOESOPHAGEAL REFLUX DISEASE
     Dates: start: 2003
  21. PEPCID [Concomitant]
     Indication: GASTROOESOPHAGEAL REFLUX DISEASE
     Dates: start: 2001
  22. TAGAMET [Concomitant]
     Indication: GASTROOESOPHAGEAL REFLUX DISEASE
     Dosage: ONE TABLET ABOUT A THREE TIMES A DAY
     Dates: start: 201306
  23. TUMS [Concomitant]
     Dosage: TWO PACKS A DAY
  24. PEPTO BISMOL [Concomitant]
     Dosage: BOTTLE A DAY
  25. MILK OF MAGNESIA [Concomitant]
     Dosage: BOTTLE A DAY
  26. MYLANTA [Concomitant]
     Dosage: BOTTLE A DAY
  27. CETIRIZINE [Concomitant]
     Indication: HYPERSENSITIVITY
  28. SERTRALINE [Concomitant]
     Indication: DEPRESSION
  29. ERGOCALCIFEROL [Concomitant]
     Indication: VITAMIN D ABNORMAL
  30. CITRUCEL [Concomitant]
     Indication: CALCIUM DEFICIENCY
  31. TIZANIDINE [Concomitant]
     Indication: MUSCLE SPASMS
  32. AMLODIPINE [Concomitant]
     Indication: BLOOD PRESSURE INCREASED
     Route: 048
  33. FOSAMAX [Concomitant]
     Route: 048
  34. HYDROCODONE [Concomitant]
  35. DICYCLOMINE [Concomitant]
     Route: 048
     Dates: start: 20101227
  36. GABAPENTIN [Concomitant]
     Route: 048

REACTIONS (18)
  - Uterine disorder [Unknown]
  - Arthritis [Unknown]
  - Intervertebral disc degeneration [Unknown]
  - Multiple fractures [Unknown]
  - Pharyngeal oedema [Unknown]
  - Calcium deficiency [Unknown]
  - Bone disorder [Unknown]
  - Abdominal pain upper [Unknown]
  - Abdominal discomfort [Unknown]
  - Depression [Unknown]
  - Osteoporosis [Unknown]
  - Oesophageal oedema [Unknown]
  - Irritable bowel syndrome [Unknown]
  - Arthralgia [Unknown]
  - Osteopenia [Unknown]
  - Vitamin D deficiency [Unknown]
  - Osteoarthritis [Unknown]
  - Chondropathy [Unknown]
